FAERS Safety Report 12037467 (Version 2)
Quarter: 2019Q1

REPORT INFORMATION
  Report Type: Spontaneous
  Country: CN (occurrence: CN)
  Receive Date: 20160208
  Receipt Date: 20190116
  Transmission Date: 20190417
  Serious: Yes (Other)
  Sender: FDA-Public Use
  Company Number: CN-ACCORD-037625

PATIENT
  Age: 72 Year
  Sex: Male

DRUGS (4)
  1. IRINOTECAN [Suspect]
     Active Substance: IRINOTECAN
     Indication: COLORECTAL CANCER STAGE II
     Dosage: FOLFIRI REGIMEN?180 MG/M^2 IV OVER 90 MIN
     Route: 042
  2. FLUOROURACIL. [Suspect]
     Active Substance: FLUOROURACIL
     Indication: COLORECTAL CANCER STAGE II
     Dosage: FOLFIRI REGIMEN?ALSO RECEIVED CONTINUOUS INFUSION OF 2400 MG/M2 46 H
     Route: 040
  3. FOLINIC ACID [Suspect]
     Active Substance: LEUCOVORIN
     Indication: COLORECTAL CANCER STAGE II
     Dosage: FOLFIRI REGIMEN?400 MG/M^2 IV OVER 2 H
     Route: 042
  4. BEVACIZUMAB. [Suspect]
     Active Substance: BEVACIZUMAB
     Indication: COLORECTAL CANCER STAGE II
     Dosage: 5 MG/KG IV OVER 90 MIN
     Route: 042

REACTIONS (8)
  - Bone marrow toxicity [Unknown]
  - Oesophageal ulcer [Unknown]
  - Oesophageal fistula [Unknown]
  - White blood cell count decreased [Unknown]
  - Shock [Recovering/Resolving]
  - Oesophageal haemorrhage [Recovered/Resolved]
  - Intestinal obstruction [Recovered/Resolved]
  - Diarrhoea [Recovered/Resolved]
